FAERS Safety Report 6223119-1 (Version None)
Quarter: 2009Q2

REPORT INFORMATION
  Report Type: 
  Country: None (occurrence: None)
  Receive Date: 20090611
  Receipt Date: 20090306
  Transmission Date: 20091009
  Serious: No
  Sender: FDA-Public Use
  Company Number: US-BAYER-200916630NA

PATIENT
  Age: 50 Year
  Sex: Female

DRUGS (6)
  1. ULTRAVIST 370 [Suspect]
     Indication: COMPUTERISED TOMOGRAM ABDOMEN
     Dosage: TOTAL DAILY DOSE: 80 ML  UNIT DOSE: 500 ML
     Route: 042
     Dates: start: 20090306, end: 20090306
  2. ULTRAVIST 370 [Suspect]
     Route: 048
     Dates: start: 20090306, end: 20090306
  3. LOTREL [Concomitant]
  4. NEXIUM [Concomitant]
  5. XANAX [Concomitant]
  6. AMBIEN [Concomitant]

REACTIONS (3)
  - EYE IRRITATION [None]
  - NERVOUSNESS [None]
  - URTICARIA [None]
